FAERS Safety Report 16048507 (Version 1)
Quarter: 2019Q1

REPORT INFORMATION
  Report Type: Spontaneous
  Country: ES (occurrence: ES)
  Receive Date: 20190307
  Receipt Date: 20190307
  Transmission Date: 20190418
  Serious: Yes (Hospitalization, Other)
  Sender: FDA-Public Use
  Company Number: ES-MYLANLABS-2019M1020420

PATIENT
  Age: 81 Year
  Sex: Female

DRUGS (9)
  1. FENTANYL. [Suspect]
     Active Substance: FENTANYL
     Indication: PRODUCT USED FOR UNKNOWN INDICATION
     Dosage: 1200 MICROGRAM (1200 MCG, [4-5 TIMES A DAY])AS NEEDED
  2. TRANSTEC [Suspect]
     Active Substance: BUPRENORPHINE
     Dosage: 140 MICROGRAM, Q3D (140 MCG, Q72H)
     Route: 062
  3. PARACETAMOL [Concomitant]
     Active Substance: ACETAMINOPHEN
     Indication: PRODUCT USED FOR UNKNOWN INDICATION
     Dosage: UNK
  4. METAMIZOLE [Concomitant]
     Active Substance: METAMIZOLE
     Indication: PRODUCT USED FOR UNKNOWN INDICATION
  5. FENTANYL. [Suspect]
     Active Substance: FENTANYL
     Dosage: 760 MICROGRAM, QD (760 MCG, DAILY [1/DAY])
     Route: 065
  6. MORPHINE SULFATE. [Suspect]
     Active Substance: MORPHINE SULFATE
     Dosage: UNK UNK, AS NEEDED
  7. OXYCODONE HYDROCHLORIDE. [Suspect]
     Active Substance: OXYCODONE HYDROCHLORIDE
     Indication: PAIN
     Dosage: 120 MILLIGRAM, BID (120 MG, Q12H)
     Route: 065
  8. MORPHINE SULFATE. [Suspect]
     Active Substance: MORPHINE SULFATE
     Indication: PAIN
     Dosage: 1300 MILLIGRAM, QD (1300 MG, DAILY [20 OR 30MG EVERY 4-6 H AS RESCUE])
     Route: 048
  9. TRANSTEC [Suspect]
     Active Substance: BUPRENORPHINE
     Indication: PAIN
     Dosage: 70 MICROGRAM, Q3D (70 MCG, EVERY 3 DAYS)
     Route: 062

REACTIONS (2)
  - Hyperaesthesia [Recovered/Resolved]
  - Off label use [Recovered/Resolved]
